FAERS Safety Report 11688347 (Version 6)
Quarter: 2019Q2

REPORT INFORMATION
  Report Type: Report from Study
  Country: US (occurrence: US)
  Receive Date: 20151031
  Receipt Date: 20190624
  Transmission Date: 20190711
  Serious: Yes (Other)
  Sender: FDA-Public Use
  Company Number: PHHY2015US123479

PATIENT
  Age: 66 Year
  Sex: Female

DRUGS (2)
  1. PLEGRIDY [Suspect]
     Active Substance: PEGINTERFERON BETA-1A
     Indication: SJOGREN^S SYNDROME
     Route: 065
  2. GILENYA [Suspect]
     Active Substance: FINGOLIMOD HYDROCHLORIDE
     Indication: MULTIPLE SCLEROSIS
     Dosage: QD
     Route: 048

REACTIONS (30)
  - Lymphocyte count decreased [Unknown]
  - Pancytopenia [Not Recovered/Not Resolved]
  - Musculoskeletal stiffness [Not Recovered/Not Resolved]
  - Gait disturbance [Unknown]
  - Mouth ulceration [Not Recovered/Not Resolved]
  - Lymphadenopathy [Unknown]
  - Rash [Unknown]
  - Sensory disturbance [Unknown]
  - Swelling face [Unknown]
  - Paraesthesia [Unknown]
  - Headache [Unknown]
  - Undifferentiated connective tissue disease [Unknown]
  - Anaemia [Not Recovered/Not Resolved]
  - Alopecia [Not Recovered/Not Resolved]
  - Vitamin D deficiency [Not Recovered/Not Resolved]
  - Sensation of foreign body [Unknown]
  - Lymphopenia [Recovered/Resolved]
  - Contusion [Not Recovered/Not Resolved]
  - Muscular weakness [Unknown]
  - Rectocele [Not Recovered/Not Resolved]
  - Deafness [Not Recovered/Not Resolved]
  - White blood cell count decreased [Unknown]
  - Headache [Recovered/Resolved]
  - Cognitive disorder [Not Recovered/Not Resolved]
  - Neck pain [Unknown]
  - Nasal congestion [Unknown]
  - Sjogren^s syndrome [Not Recovered/Not Resolved]
  - Fatigue [Not Recovered/Not Resolved]
  - Dysphagia [Unknown]
  - Muscle tightness [Unknown]

NARRATIVE: CASE EVENT DATE: 20141113
